FAERS Safety Report 6747161-7 (Version None)
Quarter: 2010Q2

REPORT INFORMATION
  Report Type: 
  Country: None (occurrence: None)
  Receive Date: 20100528
  Receipt Date: 20100517
  Transmission Date: 20101027
  Serious: Yes (Other)
  Sender: FDA-Public Use
  Company Number: US-PFIZER INC-2010044356

PATIENT
  Sex: Female

DRUGS (7)
  1. XANAX [Suspect]
     Indication: ANXIETY
     Dosage: UNK
  2. PRISTIQ [Suspect]
     Indication: DEPRESSION
     Dosage: UNK
     Dates: start: 20091101
  3. DARVOCET [Suspect]
     Indication: PAIN
     Dosage: FREQUENCY: AS NEEDED,
  4. NORVASC [Concomitant]
     Indication: BLOOD PRESSURE
     Dosage: DAILY
  5. LOPRESSOR [Concomitant]
     Indication: BLOOD PRESSURE
     Dosage: DAILY
  6. ZESTRIL [Concomitant]
     Indication: BLOOD PRESSURE
     Dosage: DAILY
  7. ZOCOR [Concomitant]
     Indication: BLOOD CHOLESTEROL
     Dosage: DAILY

REACTIONS (5)
  - ASTHENIA [None]
  - DRUG WITHDRAWAL SYNDROME [None]
  - HALLUCINATION [None]
  - INSOMNIA [None]
  - MENTAL DISORDER [None]
